FAERS Safety Report 24290345 (Version 1)
Quarter: 2024Q3

REPORT INFORMATION
  Report Type: Spontaneous
  Country: US (occurrence: None)
  Receive Date: 20240906
  Receipt Date: 20240906
  Transmission Date: 20241017
  Serious: Yes (Hospitalization)
  Sender: Public
  Company Number: None

PATIENT
  Sex: Female
  Weight: 50.3 kg

DRUGS (1)
  1. CISPLATIN [Suspect]
     Active Substance: CISPLATIN

REACTIONS (4)
  - Seizure [None]
  - Tremor [None]
  - Anal incontinence [None]
  - Haemoglobin decreased [None]

NARRATIVE: CASE EVENT DATE: 20240904
